FAERS Safety Report 13500350 (Version 1)
Quarter: 2017Q2

REPORT INFORMATION
  Report Type: Report from Study
  Country: US (occurrence: US)
  Receive Date: 20170501
  Receipt Date: 20170501
  Transmission Date: 20170830
  Serious: Yes (Hospitalization, Other)
  Sender: FDA-Public Use
  Company Number: US-APOPHARMA-2017AP011280

PATIENT
  Age: 19 Year
  Sex: Female
  Weight: 68 kg

DRUGS (3)
  1. FERRIPROX [Suspect]
     Active Substance: DEFERIPRONE
     Indication: HAEMOCHROMATOSIS
     Dosage: 7 MG/KG, TID
     Route: 048
     Dates: start: 20170123, end: 20170327
  2. FERRIPROX [Suspect]
     Active Substance: DEFERIPRONE
     Dosage: 15 MG/KG, TID
     Route: 048
     Dates: start: 20170123, end: 20170327
  3. FERRIPROX [Suspect]
     Active Substance: DEFERIPRONE
     Dosage: 11 MG/KG, TID
     Route: 048
     Dates: start: 20170123, end: 20170327

REACTIONS (3)
  - Pseudomonas infection [Recovered/Resolved]
  - Sepsis [Recovered/Resolved]
  - Abscess [Recovered/Resolved]

NARRATIVE: CASE EVENT DATE: 20170322
